FAERS Safety Report 8447545-5 (Version None)
Quarter: 2012Q2

REPORT INFORMATION
  Report Type: 
  Country: None (occurrence: None)
  Receive Date: 20120619
  Receipt Date: 20120615
  Transmission Date: 20120825
  Serious: Yes (Life-Threatening, Hospitalization, Other)
  Sender: FDA-Public Use
  Company Number: GB-ASTRAZENECA-2012SE27571

PATIENT
  Age: 42 Year
  Sex: Female

DRUGS (12)
  1. GABAPENTIN [Suspect]
     Route: 048
  2. MICONAZOLE [Concomitant]
  3. NYSTATIN [Concomitant]
  4. HYDROXYCHLOROQUINE SULFATE [Suspect]
     Route: 048
  5. FLUCLOXACILLIN [Concomitant]
  6. METRONIDAZOLE [Concomitant]
  7. OMEPRAZOLE (PRISOLEC) [Suspect]
     Route: 048
  8. SCHERIPROCT [Concomitant]
  9. METHOTREXATE [Suspect]
     Route: 048
  10. VENLAFAXINE [Suspect]
     Route: 048
  11. SULFASALAZINE [Suspect]
     Route: 048
  12. BENZYDAMINE [Concomitant]

REACTIONS (7)
  - FULL BLOOD COUNT ABNORMAL [None]
  - CONTUSION [None]
  - BLOOD DISORDER [None]
  - ABDOMINAL PAIN [None]
  - DIARRHOEA [None]
  - THROMBOCYTOPENIA [None]
  - HAEMATEMESIS [None]
